FAERS Safety Report 15440705 (Version 1)
Quarter: 2018Q3

REPORT INFORMATION
  Report Type: Spontaneous
  Country: US (occurrence: US)
  Receive Date: 20180925
  Receipt Date: 20180925
  Transmission Date: 20181010
  Serious: No
  Sender: FDA-Public Use
  Company Number: None

PATIENT
  Age: 51 Year
  Sex: Female
  Weight: 86 kg

DRUGS (1)
  1. MEPOLIZUMAB [Suspect]
     Active Substance: MEPOLIZUMAB
     Indication: ASTHMA
     Dates: start: 20180827, end: 20180827

REACTIONS (4)
  - Rash pruritic [None]
  - Rash erythematous [None]
  - Papule [None]
  - Conjunctival hyperaemia [None]

NARRATIVE: CASE EVENT DATE: 20180827
